FAERS Safety Report 5217050-8 (Version None)
Quarter: 2007Q1

REPORT INFORMATION
  Report Type: 
  Country: None (occurrence: None)
  Receive Date: 20070124
  Receipt Date: 20070116
  Transmission Date: 20070707
  Serious: Yes (Other)
  Sender: FDA-Public Use
  Company Number: US-JNJFOC-20070104240

PATIENT
  Sex: Female
  Weight: 108.86 kg

DRUGS (2)
  1. REMICADE [Suspect]
     Route: 042
  2. REMICADE [Suspect]
     Indication: PSORIASIS
     Route: 042

REACTIONS (5)
  - ARTHRALGIA [None]
  - OEDEMA PERIPHERAL [None]
  - PYREXIA [None]
  - SINUS HEADACHE [None]
  - VOMITING [None]
